FAERS Safety Report 25408744 (Version 1)
Quarter: 2025Q2

REPORT INFORMATION
  Report Type: Spontaneous
  Country: US (occurrence: US)
  Receive Date: 20250607
  Receipt Date: 20250607
  Transmission Date: 20250716
  Serious: Yes (Other)
  Sender: AMGEN
  Company Number: US-AMGEN-USASP2025106089

PATIENT
  Age: 36 Year
  Sex: Male

DRUGS (8)
  1. RITUXIMAB [Suspect]
     Active Substance: RITUXIMAB
     Indication: Granulomatosis with polyangiitis
     Dosage: 375 MILLIGRAM/SQ. METER, QMO
     Route: 040
  2. RITUXIMAB [Suspect]
     Active Substance: RITUXIMAB
     Dosage: UNK UNK, Q3MO
     Route: 040
  3. PREDNISONE [Suspect]
     Active Substance: PREDNISONE
     Indication: Granulomatosis with polyangiitis
     Dosage: 60 MILLIGRAM, QD
     Route: 048
  4. DARATUMUMAB [Concomitant]
     Active Substance: DARATUMUMAB
  5. PREDNISOLONE [Concomitant]
     Active Substance: PREDNISOLONE
     Dosage: 80 MILLIGRAM, QD
  6. MYCOPHENOLATE MOFETIL [Concomitant]
     Active Substance: MYCOPHENOLATE MOFETIL
     Dosage: 1000 MILLIGRAM, BID
  7. TOFACITINIB [Concomitant]
     Active Substance: TOFACITINIB
  8. CYCLOPHOSPHAMIDE [Concomitant]
     Active Substance: CYCLOPHOSPHAMIDE

REACTIONS (4)
  - Granulomatosis with polyangiitis [Recovering/Resolving]
  - Scleritis [Recovered/Resolved]
  - Conjunctival haemorrhage [Recovered/Resolved]
  - Cataract subcapsular [Unknown]
